FAERS Safety Report 4470690-6 (Version None)
Quarter: 2004Q4

REPORT INFORMATION
  Report Type: 
  Country: None (occurrence: None)
  Receive Date: 20041006
  Receipt Date: 20041006
  Transmission Date: 20050328
  Serious: Yes (Hospitalization)
  Sender: FDA-Public Use
  Company Number: None

PATIENT
  Sex: Female
  Weight: 86.1834 kg

DRUGS (3)
  1. ALL-TRANS-RETINOIC ACID [Suspect]
     Indication: ACUTE PROMYELOCYTIC LEUKAEMIA
     Dosage: 90 MGQ DAY 14 DAYS BUCCAL
     Route: 002
     Dates: start: 20030527, end: 20030609
  2. PREDNISONE [Concomitant]
  3. PREVACID [Concomitant]

REACTIONS (5)
  - CHEST PAIN [None]
  - DYSPNOEA [None]
  - PERICARDITIS [None]
  - PLEURITIC PAIN [None]
  - TACHYCARDIA [None]
